FAERS Safety Report 10176431 (Version 2)
Quarter: 2014Q2

REPORT INFORMATION
  Report Type: Spontaneous
  Country: US (occurrence: US)
  Receive Date: 20140516
  Receipt Date: 20140612
  Transmission Date: 20141212
  Serious: Yes (Other)
  Sender: FDA-Public Use
  Company Number: US-PFIZER INC-2014131949

PATIENT
  Age: 48 Year
  Sex: Male

DRUGS (2)
  1. LYRICA [Suspect]
     Indication: NEURALGIA
     Dosage: 150 MG, 2X/DAY
  2. OLYSIO [Concomitant]
     Dosage: UNK

REACTIONS (6)
  - Diabetes mellitus [Unknown]
  - Pancreatitis [Unknown]
  - Hepatitis C [Unknown]
  - Hepatic cirrhosis [Unknown]
  - Chronic obstructive pulmonary disease [Unknown]
  - Activities of daily living impaired [Unknown]
